FAERS Safety Report 8356569-8 (Version None)
Quarter: 2012Q2

REPORT INFORMATION
  Report Type: 
  Country: None (occurrence: None)
  Receive Date: 20120514
  Receipt Date: 20120507
  Transmission Date: 20120825
  Serious: Yes (Other)
  Sender: FDA-Public Use
  Company Number: PHHY2012JP030380

PATIENT
  Age: 69 Year
  Sex: Male

DRUGS (3)
  1. ZOMETA [Suspect]
     Indication: HYPERCALCAEMIA
     Dosage: UNK UKN, UNK
     Route: 041
     Dates: start: 20120314
  2. NEUTROGIN [Suspect]
     Dosage: UNK UKN, UNK
     Route: 065
  3. ALIMTA [Concomitant]

REACTIONS (2)
  - BONE PAIN [None]
  - COMPRESSION FRACTURE [None]
